FAERS Safety Report 4930158-7 (Version None)
Quarter: 2006Q1

REPORT INFORMATION
  Report Type: 
  Country: None (occurrence: None)
  Receive Date: 20060302
  Receipt Date: 20060222
  Transmission Date: 20060701
  Serious: Yes (Hospitalization)
  Sender: FDA-Public Use
  Company Number: FR-AVENTIS-200610769FR

PATIENT
  Age: 80 Year
  Sex: Male

DRUGS (10)
  1. LOVENOX [Suspect]
     Indication: ATRIAL FIBRILLATION
     Route: 058
     Dates: start: 20060123, end: 20060126
  2. LOVENOX [Suspect]
     Route: 058
     Dates: start: 20060127, end: 20060129
  3. PLAVIX [Suspect]
     Route: 048
     Dates: end: 20060126
  4. PREVISCAN 20 MG [Suspect]
     Indication: ATRIAL FIBRILLATION
     Route: 048
     Dates: start: 20060125, end: 20060126
  5. PREVISCAN 20 MG [Suspect]
     Route: 048
     Dates: start: 20020101, end: 20060123
  6. FUROSEMIDE [Concomitant]
     Indication: ESSENTIAL HYPERTENSION
     Route: 048
  7. COVERSYL 2 MG [Concomitant]
     Indication: ESSENTIAL HYPERTENSION
     Route: 048
  8. AMLOR [Concomitant]
     Indication: ESSENTIAL HYPERTENSION
     Route: 048
  9. ALDACTONE [Concomitant]
     Route: 048
  10. OMEPRAZOLE [Concomitant]
     Route: 048

REACTIONS (8)
  - ANAEMIA [None]
  - BLOOD GLUCOSE INCREASED [None]
  - BLOOD PRESSURE DECREASED [None]
  - CEREBROVASCULAR ACCIDENT [None]
  - DRUG INTERACTION [None]
  - MALAISE [None]
  - RECTAL HAEMORRHAGE [None]
  - SCAR [None]
